FAERS Safety Report 9221727 (Version 1)
Quarter: 2013Q1

REPORT INFORMATION
  Report Type: Spontaneous
  Country: US (occurrence: US)
  Receive Date: 20120831
  Receipt Date: 20120831
  Transmission Date: 20140127
  Serious: No
  Sender: FDA-Public Use
  Company Number: 1000029682

PATIENT
  Age: 79 Year
  Sex: Male

DRUGS (15)
  1. DALIRESP [Suspect]
     Indication: CHRONIC OBSTRUCTIVE PULMONARY DISEASE
     Route: 048
     Dates: start: 20120408
  2. SPIRIVA (TIOTROPIUM BROMIDE)(TIOTROPIUM BROMIDE) [Concomitant]
  3. ADVAIR (FLUTICASONE)(FLUTICASONE) [Concomitant]
  4. CRESTOR (ROSUVASTATIN CALCIUM)(ROSUVASTATIN CALCIUM) [Concomitant]
  5. ZETIA (EZETIMIBE)(EZETIMIBE) [Concomitant]
  6. PREDNISONE (PREDNISONE)(PREDNISONE) [Concomitant]
  7. DIOVAN (VALSARTAN)(VALSARTAN) [Concomitant]
  8. ISOSORBIDE (ISOSORBIDE)(ISOSORBIDE) [Concomitant]
  9. DIGOXIN (DIGOXIN)(DIGOXIN) [Concomitant]
  10. PLAVIX (CLOPIDOGREL BISULFATE)(CLOPIDOGREL BISULFATE) [Concomitant]
  11. CLARITIN (LORATADINE)(LORATADINE) [Concomitant]
  12. ASPIRIN (ACETYLSALICYLIC ACID)(ACETYLSALICYLIC ACID) [Concomitant]
  13. FUROSEMIDE (FUROSEMIDE)(FUROSEMIDE) [Concomitant]
  14. AZITHROMYCIN (AZITHROMYCIN)(AZITHROMYCIN) [Concomitant]
  15. WARFARIN (WARFARIN)(WARFARIN) [Concomitant]

REACTIONS (6)
  - Dizziness [None]
  - Vision blurred [None]
  - Nausea [None]
  - Back pain [None]
  - Influenza like illness [None]
  - Weight decreased [None]
